FAERS Safety Report 9535889 (Version 1)
Quarter: 2013Q3

REPORT INFORMATION
  Report Type: Spontaneous
  Country: US (occurrence: None)
  Receive Date: 20130917
  Receipt Date: 20130917
  Transmission Date: 20140515
  Serious: Yes (Hospitalization)
  Sender: FDA-Public Use
  Company Number: None

PATIENT
  Age: 78 None
  Sex: Male
  Weight: 105.5 kg

DRUGS (1)
  1. WARFARIN [Suspect]
     Indication: DEEP VEIN THROMBOSIS
     Dosage: MG, PO
     Route: 048
     Dates: start: 20130821

REACTIONS (2)
  - Haemoglobin decreased [None]
  - Epistaxis [None]
